FAERS Safety Report 4444039-9 (Version None)
Quarter: 2004Q3

REPORT INFORMATION
  Report Type: 
  Country: None (occurrence: None)
  Receive Date: 20040729
  Receipt Date: 20030618
  Transmission Date: 20050211
  Serious: Yes (Death)
  Sender: FDA-Public Use
  Company Number: USA-2003-0008053

PATIENT
  Age: 47 Year
  Sex: Female
  Weight: 86.6 kg

DRUGS (7)
  1. MORPHINE SULFATE [Suspect]
  2. HYDROCODONE BITARTRATE (SIMILAR TO IND 59,175) (HYDROCODONE BITARTRATE [Suspect]
  3. ALPRAZOLAM [Suspect]
  4. CITALOPRAM [Suspect]
  5. ERYTHROMYCIN [Suspect]
  6. CODEINE (CODEINE) [Suspect]
  7. DIHYDROCODEINE/CAFFEINE/ACETAMINOPHEN (SIMILAR TO ANDA 88-584) (DIHYDR [Suspect]

REACTIONS (2)
  - ACCIDENTAL OVERDOSE [None]
  - MULTIPLE DRUG OVERDOSE [None]
